FAERS Safety Report 19589859 (Version 1)
Quarter: 2021Q3

REPORT INFORMATION
  Report Type: Spontaneous
  Country: SE (occurrence: SE)
  Receive Date: 20210721
  Receipt Date: 20210721
  Transmission Date: 20211014
  Serious: Yes (Hospitalization)
  Sender: FDA-Public Use
  Company Number: SE-ALLERGAN-2126116US

PATIENT
  Sex: Female

DRUGS (5)
  1. FLUOXETIN [Suspect]
     Active Substance: FLUOXETINE HYDROCHLORIDE
     Indication: PRODUCT USED FOR UNKNOWN INDICATION
     Route: 065
     Dates: start: 202107, end: 202107
  2. JARNPREPARAT [Suspect]
     Active Substance: IRON
     Indication: PRODUCT USED FOR UNKNOWN INDICATION
     Dosage: UNK
     Dates: start: 202107, end: 202107
  3. ESCITALOPRAM OXALATE ? BP [Suspect]
     Active Substance: ESCITALOPRAM OXALATE
     Indication: PRODUCT USED FOR UNKNOWN INDICATION
     Dosage: OVERDOSE: UNKNOWN DOSE
     Route: 065
     Dates: start: 202107, end: 202107
  4. SERTRALINE [Suspect]
     Active Substance: SERTRALINE HYDROCHLORIDE
     Indication: PRODUCT USED FOR UNKNOWN INDICATION
     Route: 065
     Dates: start: 202107, end: 202107
  5. ASA [Suspect]
     Active Substance: ASPIRIN
     Indication: PRODUCT USED FOR UNKNOWN INDICATION
     Route: 065
     Dates: start: 202107, end: 202107

REACTIONS (6)
  - Analgesic drug level increased [Recovering/Resolving]
  - Pyrexia [Recovering/Resolving]
  - Toxicity to various agents [Recovering/Resolving]
  - Intentional self-injury [Recovering/Resolving]
  - Intentional overdose [Recovering/Resolving]
  - Tremor [Recovering/Resolving]

NARRATIVE: CASE EVENT DATE: 202107
